FAERS Safety Report 17863660 (Version 2)
Quarter: 2020Q2

REPORT INFORMATION
  Report Type: Spontaneous
  Country: KW (occurrence: KW)
  Receive Date: 20200604
  Receipt Date: 20200630
  Transmission Date: 20200714
  Serious: Yes (Other)
  Sender: FDA-Public Use
  Company Number: KW-ABBVIE-20K-091-3430780-00

PATIENT
  Sex: Male

DRUGS (1)
  1. DUODOPA [Suspect]
     Active Substance: CARBIDOPA\LEVODOPA
     Indication: PARKINSON^S DISEASE
     Route: 050

REACTIONS (10)
  - Pyrexia [Recovering/Resolving]
  - Tremor [Recovering/Resolving]
  - COVID-19 [Unknown]
  - Therapeutic product effect decreased [Recovering/Resolving]
  - Gait disturbance [Recovering/Resolving]
  - Nervous system disorder [Recovering/Resolving]
  - Dyspnoea [Recovering/Resolving]
  - Parkinson^s disease [Recovering/Resolving]
  - Fatigue [Recovering/Resolving]
  - Dyskinesia [Recovering/Resolving]

NARRATIVE: CASE EVENT DATE: 20200428
